FAERS Safety Report 5084362-0 (Version None)
Quarter: 2006Q3

REPORT INFORMATION
  Report Type: 
  Country: None (occurrence: None)
  Receive Date: 20060817
  Receipt Date: 20060817
  Transmission Date: 20061208
  Serious: Yes (Life-Threatening, Hospitalization)
  Sender: FDA-Public Use
  Company Number: None

PATIENT
  Age: 28 Year
  Sex: Female
  Weight: 63.5036 kg

DRUGS (1)
  1. SEPTRA DS [Suspect]
     Indication: URINARY TRACT INFECTION
     Dosage: DOUBLE STRENGTH TWO A DAY PO
     Route: 048
     Dates: start: 20050207, end: 20050215

REACTIONS (3)
  - PRURITUS [None]
  - PYREXIA [None]
  - RASH [None]
